FAERS Safety Report 19356656 (Version 4)
Quarter: 2022Q1

REPORT INFORMATION
  Report Type: Report from Study
  Country: CA (occurrence: CA)
  Receive Date: 20210601
  Receipt Date: 20220209
  Transmission Date: 20220423
  Serious: Yes (Hospitalization)
  Sender: FDA-Public Use
  Company Number: CA-JNJFOC-20210552815

PATIENT
  Age: 43 Year
  Sex: Female
  Weight: 60 kg

DRUGS (3)
  1. STELARA [Suspect]
     Active Substance: USTEKINUMAB
     Indication: Psoriasis
     Dosage: THERAPY START DATE ALSO GIVEN AS 21-APR-2014.
     Route: 058
     Dates: start: 20140313, end: 20220201
  2. STELARA [Suspect]
     Active Substance: USTEKINUMAB
  3. COVID-19 VACCINE [Concomitant]
     Indication: COVID-19 prophylaxis
     Route: 065

REACTIONS (1)
  - Abscess oral [Not Recovered/Not Resolved]

NARRATIVE: CASE EVENT DATE: 20210519
